FAERS Safety Report 9935391 (Version 2)
Quarter: 2015Q1

REPORT INFORMATION
  Report Type: Spontaneous
  Country: US (occurrence: US)
  Receive Date: 20140228
  Receipt Date: 20150129
  Transmission Date: 20150721
  Serious: No
  Sender: FDA-Public Use
  Company Number: US-PFIZER INC-2014057574

PATIENT
  Age: 44 Year
  Sex: Female

DRUGS (6)
  1. BIAXIN [Suspect]
     Active Substance: CLARITHROMYCIN
     Dosage: UNK
  2. ZOLOFT [Suspect]
     Active Substance: SERTRALINE HYDROCHLORIDE
     Dosage: UNK
  3. SIMVASTATIN. [Suspect]
     Active Substance: SIMVASTATIN
     Dosage: UNK
  4. LOVASTATIN. [Suspect]
     Active Substance: LOVASTATIN
     Dosage: UNK
  5. KEFLEX [Suspect]
     Active Substance: CEPHALEXIN
     Dosage: UNK
  6. MAXALT [Suspect]
     Active Substance: RIZATRIPTAN BENZOATE
     Dosage: UNK

REACTIONS (1)
  - Drug hypersensitivity [Unknown]
